FAERS Safety Report 23962379 (Version 1)
Quarter: 2024Q2

REPORT INFORMATION
  Report Type: Spontaneous
  Country: US (occurrence: None)
  Receive Date: 20240610
  Receipt Date: 20240610
  Transmission Date: 20240715
  Serious: No
  Sender: FDA-Public Use
  Company Number: None

PATIENT
  Sex: 0

DRUGS (2)
  1. PREDNISONE [Suspect]
     Active Substance: PREDNISONE
  2. COLCHICINE [Suspect]
     Active Substance: COLCHICINE

REACTIONS (2)
  - Chest pain [None]
  - Drug ineffective [None]
